FAERS Safety Report 8340328-6 (Version None)
Quarter: 2012Q2

REPORT INFORMATION
  Report Type: 
  Country: None (occurrence: None)
  Receive Date: 20120507
  Receipt Date: 20120507
  Transmission Date: 20120825
  Serious: Yes (Disabling)
  Sender: FDA-Public Use
  Company Number: None

PATIENT
  Age: 37 Year
  Sex: Male
  Weight: 79.378 kg

DRUGS (1)
  1. CREST PRO HEALTH [Suspect]
     Indication: GINGIVITIS
     Dosage: |DOSAGETEXT: 20 ML||STRENGTH: 0.07 CETYLPYRIDINIUM CHLORIDE||FREQ: ONCE DAILY||ROUTE: DENTAL|
     Route: 004
     Dates: start: 20120415, end: 20120428

REACTIONS (1)
  - TOOTH DISCOLOURATION [None]
